FAERS Safety Report 7610842-7 (Version None)
Quarter: 2011Q3

REPORT INFORMATION
  Report Type: 
  Country: None (occurrence: None)
  Receive Date: 20110715
  Receipt Date: 20110711
  Transmission Date: 20111222
  Serious: Yes (Other)
  Sender: FDA-Public Use
  Company Number: US-SANOFI-AVENTIS-2011SA044601

PATIENT
  Age: 41 Year
  Sex: Male

DRUGS (10)
  1. AMITRIPTYLINE HCL [Suspect]
     Route: 065
  2. NICOTROL [Suspect]
     Route: 055
  3. KLONOPIN [Suspect]
     Route: 065
  4. AMBIEN [Suspect]
     Route: 048
  5. VIAGRA [Suspect]
     Route: 048
  6. XANAX [Suspect]
     Route: 065
  7. INDOCIN [Suspect]
     Route: 065
  8. ATORVASTATIN CALCIUM [Suspect]
     Route: 048
  9. SOMA [Suspect]
     Route: 065
  10. FLEXERIL [Suspect]
     Route: 065

REACTIONS (4)
  - OESOPHAGEAL DISORDER [None]
  - IMPAIRED WORK ABILITY [None]
  - CONVULSION [None]
  - ANKLE FRACTURE [None]
